FAERS Safety Report 10057766 (Version 1)
Quarter: 2014Q2

REPORT INFORMATION
  Report Type: Spontaneous
  Country: US (occurrence: US)
  Receive Date: 20140404
  Receipt Date: 20140404
  Transmission Date: 20141212
  Serious: No
  Sender: FDA-Public Use
  Company Number: US-BIOGENIDEC-2014BI028683

PATIENT
  Age: 65 Year
  Sex: Male

DRUGS (10)
  1. TECFIDERA [Suspect]
     Indication: MULTIPLE SCLEROSIS
     Route: 048
  2. AMITIZA [Concomitant]
  3. BACLOFEN [Concomitant]
  4. CYMBALTA [Concomitant]
  5. GABAPENTIN [Concomitant]
  6. GLIPIZIDE ER [Concomitant]
  7. HYDROCODONE-ACETAMINOPHEN [Concomitant]
  8. M NUVIGIL [Concomitant]
  9. PRAVASTATIN SODIUM [Concomitant]
  10. ZOLPIDEM TARTRATE [Concomitant]

REACTIONS (1)
  - Headache [Unknown]
